FAERS Safety Report 7098159-3 (Version None)
Quarter: 2010Q4

REPORT INFORMATION
  Report Type: 
  Country: None (occurrence: None)
  Receive Date: 20101105
  Receipt Date: 20101101
  Transmission Date: 20110411
  Serious: Yes (Life-Threatening, Hospitalization, Other)
  Sender: FDA-Public Use
  Company Number: 2010MA004084

PATIENT
  Age: 17 Year
  Sex: Female

DRUGS (1)
  1. FEVERALL [Suspect]
     Indication: SUICIDE ATTEMPT
     Dosage: 10400 MG;X1;PO
     Route: 048

REACTIONS (6)
  - DIALYSIS [None]
  - HEPATIC FAILURE [None]
  - OVERDOSE [None]
  - RESPIRATORY RATE INCREASED [None]
  - SINUS TACHYCARDIA [None]
  - SUICIDE ATTEMPT [None]
